FAERS Safety Report 13925545 (Version 1)
Quarter: 2017Q3

REPORT INFORMATION
  Report Type: Spontaneous
  Country: US (occurrence: US)
  Receive Date: 20170831
  Receipt Date: 20170831
  Transmission Date: 20171127
  Serious: No
  Sender: FDA-Public Use
  Company Number: US-SA-2017SA112724

PATIENT
  Age: 40 Year
  Sex: Female

DRUGS (2)
  1. SOLOSTAR [Suspect]
     Active Substance: DEVICE
     Indication: TYPE 1 DIABETES MELLITUS
     Dates: start: 20170618, end: 20170618
  2. SOLIQUA 100/33 [Suspect]
     Active Substance: INSULIN GLARGINE\LIXISENATIDE
     Indication: TYPE 1 DIABETES MELLITUS
     Dosage: DOSE:62 UNIT(S)
     Route: 065
     Dates: start: 20170618, end: 20170618

REACTIONS (5)
  - Influenza like illness [Unknown]
  - Hot flush [Unknown]
  - Extra dose administered [Unknown]
  - Nausea [Unknown]
  - Device use issue [Unknown]

NARRATIVE: CASE EVENT DATE: 20170618
